FAERS Safety Report 4725057-X (Version None)
Quarter: 2005Q3

REPORT INFORMATION
  Report Type: 
  Country: None (occurrence: None)
  Receive Date: 20050721
  Receipt Date: 20050714
  Transmission Date: 20060218
  Serious: Yes (Other)
  Sender: FDA-Public Use
  Company Number: 200512649BCC

PATIENT
  Sex: Female
  Weight: 63.5036 kg

DRUGS (3)
  1. EXTRA STRENGTH BAYER PLUS CAPLETS [Suspect]
     Indication: ARTHRALGIA
     Dosage: 500 MG, QD, ORAL
     Route: 048
  2. MILK OF MAGNESIA TAB [Suspect]
     Indication: CONSTIPATION
     Dosage: 15 ML TOTAL DAILY, ORAL
     Route: 048
  3. VALIUM [Concomitant]

REACTIONS (1)
  - GASTRIC HAEMORRHAGE [None]
